FAERS Safety Report 6550272-2 (Version None)
Quarter: 2010Q1

REPORT INFORMATION
  Report Type: 
  Country: None (occurrence: None)
  Receive Date: 20100119
  Receipt Date: 20090729
  Transmission Date: 20100710
  Serious: Yes (Disabling, Other)
  Sender: FDA-Public Use
  Company Number: APP200900455

PATIENT
  Age: 41 Year
  Sex: Female

DRUGS (2)
  1. SENSORCAINE [Suspect]
     Indication: PROCEDURAL PAIN
     Dosage: CONTINUOUS VIA PUMP LEFT KNEE, INTRA-ARTICULAR;  INTRA-ARTICULAR
     Route: 014
  2. PAIN PUMP [Suspect]
     Indication: PROCEDURAL PAIN
     Dosage: LEFT KNEE

REACTIONS (5)
  - ACTIVITIES OF DAILY LIVING IMPAIRED [None]
  - ARTHRALGIA [None]
  - CHONDROLYSIS [None]
  - GRAFT COMPLICATION [None]
  - OSTEOARTHRITIS [None]
